FAERS Safety Report 6036018-5 (Version None)
Quarter: 2009Q1

REPORT INFORMATION
  Report Type: 
  Country: None (occurrence: None)
  Receive Date: 20090113
  Receipt Date: 20090106
  Transmission Date: 20090719
  Serious: Yes (Other)
  Sender: FDA-Public Use
  Company Number: US-JNJFOC-20090101572

PATIENT
  Age: 50 Year
  Sex: Female
  Weight: 63.5 kg

DRUGS (3)
  1. IMODIUM A-D [Suspect]
     Route: 048
  2. IMODIUM A-D [Suspect]
     Indication: DIARRHOEA
     Dosage: 4MG, THEN 2MG TIMES 2, TOTAL 8MG
     Route: 048
  3. UNSPECIFIED MEDICATIONS [Concomitant]

REACTIONS (2)
  - CONSTIPATION [None]
  - HAEMATOCHEZIA [None]
